FAERS Safety Report 9560788 (Version 1)
Quarter: 2013Q3

REPORT INFORMATION
  Report Type: Spontaneous
  Country: US (occurrence: None)
  Receive Date: 20130821
  Receipt Date: 20130821
  Transmission Date: 20140515
  Serious: Yes (Other)
  Sender: FDA-Public Use
  Company Number: 1000044744

PATIENT
  Age: 59 Year
  Sex: Female

DRUGS (3)
  1. TUDORZA PRESSAIR [Suspect]
     Indication: BRONCHITIS
     Route: 055
     Dates: start: 201303, end: 201303
  2. LOPRESSOR (METOPROLOL TARTRATE) [Concomitant]
  3. SEPTRA (BACTRIM) [Concomitant]

REACTIONS (2)
  - Dyspnoea [None]
  - Off label use [None]
